FAERS Safety Report 8574960-1 (Version None)
Quarter: 2012Q3

REPORT INFORMATION
  Report Type: 
  Country: None (occurrence: None)
  Receive Date: 20120807
  Receipt Date: 20120801
  Transmission Date: 20120928
  Serious: Yes (Hospitalization)
  Sender: FDA-Public Use
  Company Number: FR-BAYER-2012-078336

PATIENT
  Age: 61 Year
  Sex: Male

DRUGS (8)
  1. OLMESARTAN MEDOXOMIL [Suspect]
     Dosage: 1 DF, QD
     Route: 048
     Dates: end: 20120315
  2. METFORMIN HCL [Concomitant]
     Dosage: UNK
  3. DESLORATADINE [Concomitant]
  4. ATORVASTATIN [Concomitant]
  5. GENTAMICIN [Suspect]
     Indication: ORCHITIS
     Dosage: 240 MG, QD
     Route: 042
     Dates: start: 20120226, end: 20120228
  6. OMEPRAZOLE [Concomitant]
  7. ALLOPURINOL [Concomitant]
  8. CIPROFLOXACIN HYDROCHLORIDE [Suspect]
     Indication: ORCHITIS
     Dosage: 500 MG, BID
     Dates: start: 20120226, end: 20120313

REACTIONS (3)
  - HYPONATRAEMIA [None]
  - FACE OEDEMA [None]
  - RENAL FAILURE ACUTE [None]
